FAERS Safety Report 14700861 (Version 1)
Quarter: 2018Q1

REPORT INFORMATION
  Report Type: Spontaneous
  Country: FR (occurrence: FR)
  Receive Date: 20180330
  Receipt Date: 20180330
  Transmission Date: 20180509
  Serious: Yes (Hospitalization, Other)
  Sender: FDA-Public Use
  Company Number: FR-SA-2016SA212514

PATIENT
  Age: 58 Year
  Sex: Female
  Weight: 84 kg

DRUGS (8)
  1. KARDEGIC [Concomitant]
     Active Substance: ASPIRIN DL-LYSINE
     Dosage: POWDER FOR ORAL SOLUTION IN DOSE SACHET
     Route: 065
  2. PLAVIX [Suspect]
     Active Substance: CLOPIDOGREL BISULFATE
     Route: 048
     Dates: start: 20160924
  3. ALPRAZOLAM. [Suspect]
     Active Substance: ALPRAZOLAM
     Route: 048
     Dates: start: 20160924
  4. ISOPTINE [Concomitant]
     Active Substance: VERAPAMIL HYDROCHLORIDE
     Dosage: FORM: PROLONGED RELEASE FILM COATED DIVISIBLE TABLET
     Route: 065
  5. SERETIDE [Concomitant]
     Active Substance: FLUTICASONE PROPIONATE\SALMETEROL XINAFOATE
  6. TAHOR [Concomitant]
     Active Substance: ATORVASTATIN CALCIUM
  7. IOMERON [Suspect]
     Active Substance: IOMEPROL
     Indication: ANGIOGRAM PULMONARY
     Dosage: ROUTE- IAR,DAILY DOSE-2 SINGLE INTAKE
     Dates: start: 20160923, end: 20160924
  8. ARIXTRA [Suspect]
     Active Substance: FONDAPARINUX SODIUM
     Route: 048
     Dates: start: 20160924

REACTIONS (5)
  - Eosinophilia [Recovered/Resolved]
  - Toxic skin eruption [Recovered/Resolved]
  - Rash maculo-papular [Recovered/Resolved]
  - Pruritus generalised [Recovering/Resolving]
  - Dermatitis atopic [Recovered/Resolved]

NARRATIVE: CASE EVENT DATE: 20160925
